FAERS Safety Report 6474318-5 (Version None)
Quarter: 2009Q4

REPORT INFORMATION
  Report Type: 
  Country: None (occurrence: None)
  Receive Date: 20091204
  Receipt Date: 20091125
  Transmission Date: 20100525
  Serious: Yes (Other)
  Sender: FDA-Public Use
  Company Number: GXKR2009GB07381

PATIENT
  Age: 38 Year
  Sex: Female
  Weight: 60 kg

DRUGS (2)
  1. METRONIDAZOLE (NGX) [Suspect]
     Indication: VAGINAL INFECTION
     Dosage: 2 G, UNK
     Route: 048
     Dates: start: 20081212
  2. DALACIN [Concomitant]
     Dosage: UNK
     Route: 061
     Dates: start: 20081128

REACTIONS (4)
  - DEMYELINATION [None]
  - LHERMITTE'S SIGN [None]
  - PAIN [None]
  - PARAESTHESIA [None]
